FAERS Safety Report 4426205-1 (Version None)
Quarter: 2004Q3

REPORT INFORMATION
  Report Type: 
  Country: None (occurrence: None)
  Receive Date: 20040811
  Receipt Date: 20040727
  Transmission Date: 20050211
  Serious: Yes (Other)
  Sender: FDA-Public Use
  Company Number: USA040670388

PATIENT
  Age: 69 Year
  Sex: Female

DRUGS (5)
  1. FORTEO [Suspect]
     Indication: OSTEOPOROSIS
     Dosage: 20 UG DAY
     Dates: start: 20040301, end: 20040610
  2. ALTACE [Concomitant]
  3. COUMADIN [Concomitant]
  4. FUROSEMIDE [Concomitant]
  5. ICAPS [Concomitant]

REACTIONS (11)
  - CONSTIPATION [None]
  - DEAFNESS [None]
  - DIARRHOEA [None]
  - EAR INFECTION [None]
  - FEELING ABNORMAL [None]
  - GASTRIC DISORDER [None]
  - HEADACHE [None]
  - INFLUENZA [None]
  - MUSCLE CRAMP [None]
  - SINUSITIS [None]
  - TREATMENT NONCOMPLIANCE [None]
